FAERS Safety Report 11461242 (Version 1)
Quarter: 2015Q3

REPORT INFORMATION
  Report Type: Spontaneous
  Country: US (occurrence: US)
  Receive Date: 20150831
  Receipt Date: 20150831
  Transmission Date: 20151125
  Serious: No
  Sender: FDA-Public Use
  Company Number: US-ELI_LILLY_AND_COMPANY-US201007003034

PATIENT
  Age: 40 Year
  Sex: Female

DRUGS (1)
  1. CYMBALTA [Suspect]
     Active Substance: DULOXETINE HYDROCHLORIDE
     Indication: MAJOR DEPRESSION
     Dosage: 30 MG, UNK
     Dates: start: 20100105, end: 20100712

REACTIONS (5)
  - Mania [Unknown]
  - Insomnia [Unknown]
  - Tachyphrenia [Unknown]
  - Irritability [Unknown]
  - Aggression [Unknown]

NARRATIVE: CASE EVENT DATE: 20100712
